FAERS Safety Report 6413173-6 (Version None)
Quarter: 2009Q4

REPORT INFORMATION
  Report Type: 
  Country: None (occurrence: None)
  Receive Date: 20091022
  Receipt Date: 20091022
  Transmission Date: 20100525
  Serious: No
  Sender: FDA-Public Use
  Company Number: None

PATIENT
  Age: 51 Year
  Sex: Male

DRUGS (1)
  1. OLANZAPINE [Suspect]
     Dates: start: 20090729

REACTIONS (2)
  - MENTAL STATUS CHANGES [None]
  - MIOSIS [None]
